FAERS Safety Report 5245033-0 (Version None)
Quarter: 2007Q1

REPORT INFORMATION
  Report Type: 
  Country: None (occurrence: None)
  Receive Date: 20070223
  Receipt Date: 20070213
  Transmission Date: 20070707
  Serious: Yes (Life-Threatening)
  Sender: FDA-Public Use
  Company Number: US-BRISTOL-MYERS SQUIBB COMPANY-13687330

PATIENT
  Age: 61 Year
  Sex: Male

DRUGS (3)
  1. PRINIVIL [Suspect]
  2. POTASSIUM CHLORIDE [Suspect]
  3. VASOTEC [Suspect]

REACTIONS (2)
  - FALL [None]
  - UPPER LIMB FRACTURE [None]
